FAERS Safety Report 7107570-3 (Version None)
Quarter: 2010Q4

REPORT INFORMATION
  Report Type: 
  Country: None (occurrence: None)
  Receive Date: 20101117
  Receipt Date: 20101109
  Transmission Date: 20110411
  Serious: No
  Sender: FDA-Public Use
  Company Number: US-PFIZER INC-2010144077

PATIENT
  Sex: Female

DRUGS (3)
  1. AROMASIN [Suspect]
     Dosage: 25 MG, DAILY
     Route: 048
     Dates: start: 20100101
  2. AVAPRO [Concomitant]
     Indication: BLOOD PRESSURE INCREASED
     Dosage: UNK
  3. NORVASC [Concomitant]
     Indication: BLOOD PRESSURE INCREASED
     Dosage: UNK

REACTIONS (1)
  - PRURITUS GENERALISED [None]
